FAERS Safety Report 21833363 (Version 1)
Quarter: 2023Q1

REPORT INFORMATION
  Report Type: Spontaneous
  Country: DE (occurrence: DE)
  Receive Date: 20230107
  Receipt Date: 20230107
  Transmission Date: 20230417
  Serious: Yes (Other)
  Sender: FDA-Public Use
  Company Number: DE-BAXTER-2022BAX031279

PATIENT

DRUGS (33)
  1. BORTEZOMIB [Suspect]
     Active Substance: BORTEZOMIB
     Indication: Plasma cell myeloma
     Dosage: UNK
     Route: 065
  2. BORTEZOMIB [Suspect]
     Active Substance: BORTEZOMIB
     Dosage: FIRST LINE TREATMENT
     Route: 065
     Dates: start: 20130924, end: 20140214
  3. BORTEZOMIB [Suspect]
     Active Substance: BORTEZOMIB
     Dosage: FOURT LINE TREATMENT
     Route: 065
     Dates: start: 20180511, end: 20181210
  4. MELPHALAN [Suspect]
     Active Substance: MELPHALAN
     Indication: Plasma cell myeloma
     Dosage: FIRST LINE TCREATMENT
     Route: 065
     Dates: start: 20130924
  5. LENALIDOMIDE [Suspect]
     Active Substance: LENALIDOMIDE
     Indication: Plasma cell myeloma
     Dosage: SECOND LINE TREATMENT
     Route: 065
     Dates: start: 20160426, end: 20170707
  6. LENALIDOMIDE [Suspect]
     Active Substance: LENALIDOMIDE
     Dosage: THIRD LINE TREATMENT
     Route: 065
     Dates: start: 20180223
  7. ADRIAMYCIN [Suspect]
     Active Substance: DOXORUBICIN HYDROCHLORIDE
     Indication: Plasma cell myeloma
     Dosage: DARA-KTD-PACE REGIMEN
     Route: 065
  8. BENDAMUSTINE [Suspect]
     Active Substance: BENDAMUSTINE
     Indication: Plasma cell myeloma
     Dosage: UNK
     Route: 065
  9. CYCLOPHOSPHAMIDE [Suspect]
     Active Substance: CYCLOPHOSPHAMIDE
     Indication: Plasma cell myeloma
     Dosage: DARA-KTD-PACE REGIMEN
     Route: 065
  10. CYCLOPHOSPHAMIDE [Suspect]
     Active Substance: CYCLOPHOSPHAMIDE
     Dosage: FIRST LINE TREATMENT
     Route: 065
     Dates: start: 20130924
  11. CARFILZOMIB [Suspect]
     Active Substance: CARFILZOMIB
     Indication: Plasma cell myeloma
     Dosage: DARA-KTD-PACE REGIMEN
     Route: 065
  12. CARFILZOMIB [Suspect]
     Active Substance: CARFILZOMIB
     Dosage: SECOND LINE TREATMENT
     Route: 065
     Dates: start: 20160426, end: 20170707
  13. CARFILZOMIB [Suspect]
     Active Substance: CARFILZOMIB
     Dosage: SIXTH LINE TREATMENT
     Route: 065
     Dates: start: 20190812
  14. DEXAMETHASONE [Suspect]
     Active Substance: DEXAMETHASONE
     Indication: Plasma cell myeloma
     Dosage: DARA-KTD-PACE REGIMEN
     Route: 065
  15. DEXAMETHASONE [Suspect]
     Active Substance: DEXAMETHASONE
     Dosage: FIRST LINE TREATMENT
     Route: 065
     Dates: start: 20130924, end: 20140214
  16. DEXAMETHASONE [Suspect]
     Active Substance: DEXAMETHASONE
     Dosage: SECOND LINE TREATMENT
     Route: 065
     Dates: start: 20160426, end: 20170707
  17. DEXAMETHASONE [Suspect]
     Active Substance: DEXAMETHASONE
     Dosage: THIRD LINE TREATMENT
     Route: 065
     Dates: start: 20180223, end: 20180413
  18. DEXAMETHASONE [Suspect]
     Active Substance: DEXAMETHASONE
     Dosage: FOURTH LINE TREATMENT
     Route: 065
     Dates: start: 20180511, end: 20181210
  19. DEXAMETHASONE [Suspect]
     Active Substance: DEXAMETHASONE
     Dosage: SIXTH LINE TREATMENT
     Route: 065
     Dates: start: 20190812, end: 20190930
  20. DEXAMETHASONE [Suspect]
     Active Substance: DEXAMETHASONE
     Dosage: FIFTH LINE TREATMENT
     Route: 065
     Dates: start: 20190114, end: 20190715
  21. DEXAMETHASONE [Suspect]
     Active Substance: DEXAMETHASONE
     Dosage: MOST RECENT LINE TREATMENT
     Route: 065
     Dates: start: 20221101
  22. DARATUMUMAB [Suspect]
     Active Substance: DARATUMUMAB
     Indication: Plasma cell myeloma
     Dosage: DARA-KTD-PACE REGIMEN
     Route: 065
  23. DARATUMUMAB [Suspect]
     Active Substance: DARATUMUMAB
     Dosage: THIRD LINE TREATMENT
     Route: 065
     Dates: start: 20180223, end: 20180413
  24. DARATUMUMAB [Suspect]
     Active Substance: DARATUMUMAB
     Dosage: FOURTH LINE TREATMENT
     Route: 065
     Dates: start: 20180511, end: 20181210
  25. DARATUMUMAB [Suspect]
     Active Substance: DARATUMUMAB
     Dosage: FIFTH LINE TREATMENT
     Route: 065
     Dates: start: 20190114, end: 20190715
  26. DARATUMUMAB [Suspect]
     Active Substance: DARATUMUMAB
     Dosage: MOST RECENT LINE TREATMENT
     Route: 065
     Dates: start: 20221101
  27. ETOPOSIDE [Suspect]
     Active Substance: ETOPOSIDE
     Indication: Plasma cell myeloma
     Dosage: DARA-KTD-PACE REGIMEN
     Route: 065
  28. ISATUXIMAB [Suspect]
     Active Substance: ISATUXIMAB
     Indication: Plasma cell myeloma
     Dosage: UNK
     Route: 065
  29. PLATINUM [Suspect]
     Active Substance: PLATINUM
     Indication: Plasma cell myeloma
     Dosage: DARA-KTD-PACE REGIMEN
     Route: 065
  30. POMALIDOMIDE [Suspect]
     Active Substance: POMALIDOMIDE
     Indication: Plasma cell myeloma
     Dosage: FIFTH LINE TREATMENT
     Route: 065
     Dates: start: 20190114, end: 20190715
  31. POMALIDOMIDE [Suspect]
     Active Substance: POMALIDOMIDE
     Dosage: MOST RECENT LINE TREATMENT
     Route: 065
     Dates: start: 20221101
  32. THALIDOMIDE [Suspect]
     Active Substance: THALIDOMIDE
     Indication: Plasma cell myeloma
     Dosage: DARA-KTD-PACE REGIMEN
     Route: 065
  33. VENETOCLAX [Suspect]
     Active Substance: VENETOCLAX
     Indication: Plasma cell myeloma
     Dosage: UNK
     Route: 065

REACTIONS (2)
  - Plasma cell myeloma refractory [Unknown]
  - Disease progression [Unknown]
